FAERS Safety Report 16865239 (Version 1)
Quarter: 2019Q3

REPORT INFORMATION
  Report Type: Spontaneous
  Country: FR (occurrence: FR)
  Receive Date: 20190930
  Receipt Date: 20190930
  Transmission Date: 20191005
  Serious: Yes (Death, Hospitalization)
  Sender: FDA-Public Use
  Company Number: FR-ROCHE-2417741

PATIENT
  Age: 60 Year
  Sex: Female

DRUGS (2)
  1. VINORELBINE [Concomitant]
     Active Substance: VINORELBINE TARTRATE
     Route: 048
  2. CAPECITABINE. [Suspect]
     Active Substance: CAPECITABINE
     Indication: BREAST CANCER METASTATIC
     Dosage: 1000 MG THE MORNING AND 1250 MG THE EVENING
     Route: 048

REACTIONS (15)
  - General physical health deterioration [Unknown]
  - Nausea [Unknown]
  - Coagulation factor deficiency [Unknown]
  - Thrombocytopenia [Fatal]
  - Dermatitis exfoliative generalised [Unknown]
  - Cell death [Unknown]
  - Palmar-plantar erythrodysaesthesia syndrome [Unknown]
  - Vomiting [Unknown]
  - Neutropenia [Fatal]
  - Mucosal inflammation [Unknown]
  - Hepatic function abnormal [Unknown]
  - Erythema [Unknown]
  - Decreased appetite [Unknown]
  - Sepsis [Unknown]
  - Renal impairment [Unknown]
